FAERS Safety Report 24252239 (Version 3)
Quarter: 2024Q3

REPORT INFORMATION
  Report Type: Spontaneous
  Country: DE (occurrence: DE)
  Receive Date: 20240827
  Receipt Date: 20240906
  Transmission Date: 20241017
  Serious: Yes (Other)
  Sender: CELLTRION
  Company Number: DE-CELLTRION INC.-2024DE020228

PATIENT

DRUGS (2)
  1. INFLIXIMAB [Suspect]
     Active Substance: INFLIXIMAB
     Indication: Product used for unknown indication
     Dosage: UNK
     Route: 058
     Dates: start: 202405
  2. INFLIXIMAB [Suspect]
     Active Substance: INFLIXIMAB
     Indication: Product used for unknown indication
     Dosage: INDUCED REMSIMA I.V. IN JUNE 23, EVERY 4 WEEKS FOR SIX MONTHS
     Route: 042
     Dates: start: 202304, end: 20240429

REACTIONS (2)
  - Dyspnoea at rest [Unknown]
  - Cough [Unknown]

NARRATIVE: CASE EVENT DATE: 20240501
